FAERS Safety Report 4265952-1 (Version None)
Quarter: 2004Q1

REPORT INFORMATION
  Report Type: 
  Country: None (occurrence: None)
  Receive Date: 20040106
  Receipt Date: 20031222
  Transmission Date: 20041129
  Serious: Yes (Other)
  Sender: FDA-Public Use
  Company Number: 2003120213

PATIENT
  Age: 46 Year
  Sex: Female
  Weight: 75.7 kg

DRUGS (7)
  1. VFEND [Suspect]
     Indication: PNEUMONIA
     Dosage: ORAL
     Route: 048
     Dates: start: 20031111, end: 20031125
  2. VFEND [Suspect]
     Indication: PYREXIA
     Dosage: ORAL
     Route: 048
     Dates: start: 20031111, end: 20031125
  3. VFEND [Suspect]
     Indication: RESPIRATORY MONILIASIS
     Dosage: ORAL
     Route: 048
     Dates: start: 20031111, end: 20031125
  4. CIPROFLOXACIN HYDROCHLORIDE [Concomitant]
  5. PRIMAXIN [Concomitant]
  6. IMIPENEM [Concomitant]
  7. MORPHINE [Concomitant]

REACTIONS (6)
  - ACUTE PSYCHOSIS [None]
  - AGGRESSION [None]
  - CONFUSIONAL STATE [None]
  - FEAR [None]
  - HALLUCINATION [None]
  - RESTLESSNESS [None]
